FAERS Safety Report 4299659-1 (Version None)
Quarter: 2004Q1

REPORT INFORMATION
  Report Type: 
  Country: None (occurrence: None)
  Receive Date: 20040217
  Receipt Date: 20040217
  Transmission Date: 20041129
  Serious: Yes (Other)
  Sender: FDA-Public Use
  Company Number: None

PATIENT
  Age: 37 Year
  Sex: Male

DRUGS (4)
  1. PREDNISONE [Suspect]
     Indication: SCIATICA
     Dosage: 2 TABLETS DAILY
  2. NEXIUM [Concomitant]
  3. SYNTHROID [Concomitant]
  4. ALPRAZOLAM [Concomitant]

REACTIONS (2)
  - ANXIETY [None]
  - EUPHORIC MOOD [None]
